FAERS Safety Report 25832352 (Version 2)
Quarter: 2025Q3

REPORT INFORMATION
  Report Type: Spontaneous
  Country: JP (occurrence: JP)
  Receive Date: 20250922
  Receipt Date: 20250929
  Transmission Date: 20251021
  Serious: Yes (Hospitalization)
  Sender: BAYER HEALTHCARE PHARMACEUTICALS INC.
  Company Number: JP-BAYER-2025A123762

PATIENT
  Age: 88 Year
  Sex: Female
  Weight: 43 kg

DRUGS (6)
  1. IOPROMIDE [Suspect]
     Active Substance: IOPROMIDE
     Indication: Thoracic endovascular aortic repair
  2. PROPOFOL [Concomitant]
     Active Substance: PROPOFOL
     Indication: Induction of anaesthesia
  3. FENTANYL [Concomitant]
     Active Substance: FENTANYL
     Indication: Induction of anaesthesia
  4. ROCURONIUM BROMIDE [Concomitant]
     Active Substance: ROCURONIUM BROMIDE
     Indication: Induction of anaesthesia
  5. DESFLURANE [Concomitant]
     Active Substance: DESFLURANE
     Indication: Maintenance of anaesthesia
  6. REMIFENTANIL [Concomitant]
     Active Substance: REMIFENTANIL
     Indication: Maintenance of anaesthesia

REACTIONS (1)
  - Contrast encephalopathy [Recovering/Resolving]
